FAERS Safety Report 7405850-5 (Version None)
Quarter: 2011Q2

REPORT INFORMATION
  Report Type: 
  Country: None (occurrence: None)
  Receive Date: 20110411
  Receipt Date: 20110404
  Transmission Date: 20111010
  Serious: Yes (Hospitalization)
  Sender: FDA-Public Use
  Company Number: GB-PFIZER INC-2009297948

PATIENT
  Age: 68 Year
  Sex: Male

DRUGS (1)
  1. CELECOXIB [Suspect]
     Indication: OSTEOARTHRITIS
     Dosage: 100 MG, 2 X A DAY AS NEEDED
     Route: 048
     Dates: start: 20081106, end: 20081224

REACTIONS (2)
  - HAEMORRHAGE [None]
  - HAEMATOMA [None]
